FAERS Safety Report 24702619 (Version 1)
Quarter: 2024Q4

REPORT INFORMATION
  Report Type: Spontaneous
  Country: US (occurrence: US)
  Receive Date: 20241205
  Receipt Date: 20241205
  Transmission Date: 20250115
  Serious: No
  Sender: ELI LILLY AND COMPANY
  Company Number: US-ELI_LILLY_AND_COMPANY-US202412001496

PATIENT
  Sex: Female

DRUGS (2)
  1. ERBITUX [Suspect]
     Active Substance: CETUXIMAB
     Indication: Product used for unknown indication
     Dosage: UNK UNK, UNKNOWN
     Route: 065
  2. MEKTOVI [Suspect]
     Active Substance: BINIMETINIB
     Indication: Product used for unknown indication
     Dosage: 45 MG, BID
     Route: 048
     Dates: start: 20241028

REACTIONS (9)
  - Vaginal haemorrhage [Unknown]
  - Anal fissure [Unknown]
  - Haemorrhoids [Unknown]
  - Neutropenia [Unknown]
  - Oral pain [Unknown]
  - Oropharyngeal pain [Unknown]
  - Abdominal pain [Unknown]
  - Liver function test increased [Unknown]
  - Rash [Unknown]
